FAERS Safety Report 25705592 (Version 2)
Quarter: 2025Q3

REPORT INFORMATION
  Report Type: Spontaneous
  Country: US (occurrence: US)
  Receive Date: 20250820
  Receipt Date: 20250924
  Transmission Date: 20251021
  Serious: Yes (Hospitalization)
  Sender: SCIEGEN PHARMACEUTICALS INC
  Company Number: US-SCIEGENP-2025SCLIT00224

PATIENT

DRUGS (5)
  1. LAMOTRIGINE [Suspect]
     Active Substance: LAMOTRIGINE
     Indication: Product used for unknown indication
     Route: 048
  2. QUETIAPINE [Suspect]
     Active Substance: QUETIAPINE
     Indication: Product used for unknown indication
     Route: 048
  3. VENLAFAXINE HYDROCHLORIDE [Suspect]
     Active Substance: VENLAFAXINE HYDROCHLORIDE
     Indication: Product used for unknown indication
     Route: 048
  4. DIAZEPAM [Suspect]
     Active Substance: DIAZEPAM
     Indication: Product used for unknown indication
     Route: 048
  5. COCAINE [Suspect]
     Active Substance: COCAINE
     Indication: Product used for unknown indication
     Route: 048

REACTIONS (5)
  - Hyperhidrosis [Recovered/Resolved]
  - Sedation [Recovered/Resolved]
  - Tachycardia [Recovered/Resolved]
  - Toxicity to various agents [Unknown]
  - Intentional product misuse [Unknown]
